FAERS Safety Report 4967051-X (Version None)
Quarter: 2006Q1

REPORT INFORMATION
  Report Type: 
  Country: None (occurrence: None)
  Receive Date: 20060201
  Receipt Date: 20051224
  Transmission Date: 20060701
  Serious: No
  Sender: FDA-Public Use
  Company Number: 2005PV006227

PATIENT
  Age: 61 Year
  Sex: Female
  Weight: 86.1834 kg

DRUGS (11)
  1. BYETTA [Suspect]
     Indication: DIABETES MELLITUS NON-INSULIN-DEPENDENT
     Dosage: SEE IMAGE
     Route: 058
     Dates: start: 20051203, end: 20051216
  2. BYETTA [Suspect]
     Indication: DIABETES MELLITUS NON-INSULIN-DEPENDENT
     Dosage: SEE IMAGE
     Route: 058
     Dates: start: 20051224
  3. GLUCOPHAGE [Concomitant]
  4. AMARYL [Concomitant]
  5. AVANDIA [Concomitant]
  6. PLAVIX [Concomitant]
  7. COREG [Concomitant]
  8. ASPIRIN [Concomitant]
  9. FISH OIL [Concomitant]
  10. NONI JUICE [Concomitant]
  11. CRANBERRY JUICE [Concomitant]

REACTIONS (6)
  - COUGH [None]
  - DECREASED APPETITE [None]
  - NAUSEA [None]
  - UPPER RESPIRATORY TRACT INFECTION [None]
  - VOMITING [None]
  - WEIGHT DECREASED [None]
